FAERS Safety Report 10196685 (Version 1)
Quarter: 2014Q2

REPORT INFORMATION
  Report Type: Report from Study
  Country: US (occurrence: US)
  Receive Date: 20140527
  Receipt Date: 20140527
  Transmission Date: 20141212
  Serious: Yes (Hospitalization, Other)
  Sender: FDA-Public Use
  Company Number: US-SA-2014SA065830

PATIENT
  Age: 68 Year
  Sex: Female

DRUGS (13)
  1. ARAVA [Suspect]
     Indication: PSORIATIC ARTHROPATHY
     Route: 065
  2. HUMIRA [Suspect]
     Indication: PRODUCT USED FOR UNKNOWN INDICATION
     Dosage: FREQUENCY:EVERY 2 WEEK
     Route: 065
     Dates: start: 2009, end: 20101017
  3. HUMIRA [Suspect]
     Indication: PRODUCT USED FOR UNKNOWN INDICATION
     Dosage: FREQUENCY:EVERY 2 WEEK
     Route: 065
     Dates: start: 201301
  4. ARMOUR THYROID [Suspect]
     Indication: PRODUCT USED FOR UNKNOWN INDICATION
     Route: 065
  5. ZOCOR [Suspect]
     Indication: BLOOD CHOLESTEROL INCREASED
     Route: 065
     Dates: start: 201306
  6. MULTIVITAMINS [Concomitant]
     Indication: VITAMIN SUPPLEMENTATION
  7. CALCIUM [Concomitant]
     Indication: MINERAL SUPPLEMENTATION
  8. ESTRADIOL [Concomitant]
     Indication: HORMONE REPLACEMENT THERAPY
  9. FLUOXETINE [Concomitant]
     Indication: FIBROMYALGIA
  10. PRAVASTATIN [Concomitant]
     Indication: BLOOD CHOLESTEROL INCREASED
  11. TRAZODONE [Concomitant]
     Indication: FIBROMYALGIA
  12. DIPHENHYDRAMINE [Concomitant]
     Indication: RHINORRHOEA
  13. IMODIUM [Concomitant]
     Indication: DIARRHOEA

REACTIONS (15)
  - Myocardial infarction [Recovered/Resolved]
  - Lower limb fracture [Unknown]
  - Lipoma [Unknown]
  - Heart rate decreased [Recovered/Resolved]
  - Fall [Unknown]
  - Chest discomfort [Recovered/Resolved]
  - Impaired healing [Recovered/Resolved]
  - Vitamin D decreased [Unknown]
  - Back pain [Not Recovered/Not Resolved]
  - Arthralgia [Not Recovered/Not Resolved]
  - Pernicious anaemia [Unknown]
  - C-reactive protein increased [Unknown]
  - Hepatic enzyme increased [Unknown]
  - Hepatic enzyme increased [Recovered/Resolved]
  - Incorrect dose administered [Unknown]
